FAERS Safety Report 25183091 (Version 1)
Quarter: 2025Q2

REPORT INFORMATION
  Report Type: Spontaneous
  Country: US (occurrence: US)
  Receive Date: 20250410
  Receipt Date: 20250410
  Transmission Date: 20250717
  Serious: Yes (Death, Other)
  Sender: AMGEN
  Company Number: US-AMGEN-USASP2025065083

PATIENT
  Age: 75 Year
  Sex: Female

DRUGS (6)
  1. FILGRASTIM [Suspect]
     Active Substance: FILGRASTIM
     Indication: Neutropenia
     Dosage: 480 MICROGRAM, QD (TOTAL 12 DOSE)
     Route: 065
  2. FILGRASTIM [Suspect]
     Active Substance: FILGRASTIM
     Indication: Off label use
  3. CYCLOSPORINE [Suspect]
     Active Substance: CYCLOSPORINE
     Indication: Product used for unknown indication
     Route: 065
  4. CIPROFLOXACIN [Concomitant]
     Active Substance: CIPROFLOXACIN
     Indication: Prophylaxis
     Route: 065
  5. DEXAMETHASONE [Concomitant]
     Active Substance: DEXAMETHASONE
     Indication: Immune reconstitution inflammatory syndrome
  6. TOCILIZUMAB [Concomitant]
     Active Substance: TOCILIZUMAB
     Indication: Immune reconstitution inflammatory syndrome
     Route: 065

REACTIONS (11)
  - Death [Fatal]
  - Antiphospholipid syndrome [Unknown]
  - Streptococcal bacteraemia [Unknown]
  - Colitis microscopic [Unknown]
  - Shock [Unknown]
  - Immune reconstitution inflammatory syndrome [Unknown]
  - Leukaemoid reaction [Unknown]
  - Muscular weakness [Unknown]
  - General physical health deterioration [Unknown]
  - Acidosis [Unknown]
  - Off label use [Unknown]
